FAERS Safety Report 9992950 (Version 1)
Quarter: 2014Q1

REPORT INFORMATION
  Report Type: Spontaneous
  Country: US (occurrence: US)
  Receive Date: 20140310
  Receipt Date: 20140310
  Transmission Date: 20141002
  Serious: No
  Sender: FDA-Public Use
  Company Number: US-ABBVIE-13P-163-1100680-00

PATIENT
  Sex: Female
  Weight: 149.82 kg

DRUGS (2)
  1. LUPRON DEPOT [Suspect]
     Indication: PRODUCT USED FOR UNKNOWN INDICATION
     Dosage: RECENT, 2ND INJECTION GIVEN IN APR 2013
     Route: 030
     Dates: start: 2013
  2. LUPRON DEPOT [Suspect]
     Indication: PRODUCT USED FOR UNKNOWN INDICATION
     Route: 030
     Dates: start: 201212, end: 201212

REACTIONS (1)
  - Drug ineffective [Not Recovered/Not Resolved]
